FAERS Safety Report 6678185-6 (Version None)
Quarter: 2010Q2

REPORT INFORMATION
  Report Type: 
  Country: None (occurrence: None)
  Receive Date: 20100408
  Receipt Date: 20100408
  Transmission Date: 20101027
  Serious: Yes (Hospitalization)
  Sender: FDA-Public Use
  Company Number: None

PATIENT
  Sex: Male
  Weight: 73.8 kg

DRUGS (3)
  1. TRETINOIN [Suspect]
     Dosage: 1320 MG
  2. CYTARABINE [Suspect]
     Dosage: 2646 MG
  3. DAUNORUBICIN HCL [Suspect]
     Dosage: 388 MG

REACTIONS (7)
  - ABASIA [None]
  - CONTUSION [None]
  - HAEMOPTYSIS [None]
  - OXYGEN SATURATION DECREASED [None]
  - PAIN IN EXTREMITY [None]
  - PULMONARY HAEMORRHAGE [None]
  - SWELLING [None]
